FAERS Safety Report 5060829-6 (Version None)
Quarter: 2006Q3

REPORT INFORMATION
  Report Type: 
  Country: None (occurrence: None)
  Receive Date: 20060725
  Receipt Date: 20060712
  Transmission Date: 20061208
  Serious: Yes (Other)
  Sender: FDA-Public Use
  Company Number: US-GLAXOSMITHKLINE-A0612175A

PATIENT
  Age: 75 Year
  Sex: Female

DRUGS (6)
  1. LAMICTAL [Suspect]
     Indication: BIPOLAR DISORDER
     Route: 048
     Dates: start: 20061001
  2. KLONOPIN [Concomitant]
  3. DILTIAZEM HCL [Concomitant]
  4. RANITIDINE [Concomitant]
  5. VITAMIN B-12 [Concomitant]
  6. ASPIRIN [Concomitant]

REACTIONS (5)
  - ERYTHEMA [None]
  - NIGHT SWEATS [None]
  - RASH MACULAR [None]
  - SKIN ATROPHY [None]
  - SKIN DISORDER [None]
